FAERS Safety Report 11701747 (Version 1)
Quarter: 2015Q4

REPORT INFORMATION
  Report Type: Spontaneous
  Country: US (occurrence: US)
  Receive Date: 20151105
  Receipt Date: 20151105
  Transmission Date: 20160304
  Serious: No
  Sender: FDA-Public Use
  Company Number: US-MALLINCKRODT-T201503140

PATIENT
  Age: 74 Year
  Sex: Male
  Weight: 85 kg

DRUGS (4)
  1. GABAPENTIN. [Concomitant]
     Active Substance: GABAPENTIN
     Dosage: 800 MG TID OR QID IF NEEDED
  2. FENTANYL TRANSDERMAL SYSTEM [Suspect]
     Active Substance: FENTANYL
     Indication: MYOPATHY
  3. FENTANYL TRANSDERMAL SYSTEM [Suspect]
     Active Substance: FENTANYL
     Indication: PAIN IN EXTREMITY
     Dosage: 25 MCG/HR, EVERY 72 HOURS
     Route: 062
     Dates: start: 201502
  4. ENDOCET [Concomitant]
     Active Substance: ACETAMINOPHEN\OXYCODONE HYDROCHLORIDE
     Dosage: 7.5/325MG Q6-7HRS PRN

REACTIONS (7)
  - Pain in extremity [Recovered/Resolved]
  - Drug withdrawal syndrome [Unknown]
  - Decreased appetite [Not Recovered/Not Resolved]
  - Drug ineffective [Recovered/Resolved]
  - Weight decreased [Not Recovered/Not Resolved]
  - Abdominal discomfort [Recovered/Resolved]
  - Inappropriate schedule of drug administration [Recovered/Resolved]

NARRATIVE: CASE EVENT DATE: 201502
